FAERS Safety Report 5513020-0 (Version None)
Quarter: 2007Q4

REPORT INFORMATION
  Report Type: 
  Country: None (occurrence: None)
  Receive Date: 20071112
  Receipt Date: 20071108
  Transmission Date: 20080405
  Serious: Yes (Death, Hospitalization)
  Sender: FDA-Public Use
  Company Number: A0545274A

PATIENT
  Age: 34 Year
  Sex: Female
  Weight: 70.7 kg

DRUGS (4)
  1. TOSITUMOMAB [Suspect]
     Indication: NON-HODGKIN'S LYMPHOMA
     Route: 042
     Dates: start: 20010801, end: 20010801
  2. IODINE I 131 TOSITUMOMAB [Suspect]
     Indication: NON-HODGKIN'S LYMPHOMA
     Route: 042
     Dates: start: 20010801, end: 20010801
  3. TOSITUMOMAB [Suspect]
     Route: 042
     Dates: start: 20010808, end: 20010808
  4. IODINE I 131 TOSITUMOMAB [Suspect]
     Route: 042
     Dates: start: 20010808, end: 20010808

REACTIONS (1)
  - SEPSIS [None]
